FAERS Safety Report 5369483-7 (Version None)
Quarter: 2007Q2

REPORT INFORMATION
  Report Type: 
  Country: None (occurrence: None)
  Receive Date: 20070621
  Receipt Date: 20070609
  Transmission Date: 20071010
  Serious: Yes (Other)
  Sender: FDA-Public Use
  Company Number: 2007S1000253

PATIENT
  Age: 65 Year
  Sex: Male

DRUGS (6)
  1. CUBICIN [Suspect]
     Indication: CELLULITIS
     Dosage: IV
     Route: 042
  2. PENTOSTATIN [Concomitant]
  3. CYCLOPHOSPHAMIDE [Concomitant]
  4. RITUXIMAB [Concomitant]
  5. MOXIFLOXACIN HCL [Concomitant]
  6. TRIAMCINOLONE [Concomitant]

REACTIONS (7)
  - BALANITIS [None]
  - EOSINOPHILIC CELLULITIS [None]
  - EPIDERMAL NECROSIS [None]
  - ERYTHEMA [None]
  - KAPOSI'S VARICELLIFORM ERUPTION [None]
  - PRURITUS [None]
  - SKIN EROSION [None]
